FAERS Safety Report 8674645 (Version 4)
Quarter: 2013Q4

REPORT INFORMATION
  Report Type: Report from Study
  Country: ES (occurrence: ES)
  Receive Date: 20120720
  Receipt Date: 20131108
  Transmission Date: 20140711
  Serious: Yes (Other)
  Sender: FDA-Public Use
  Company Number: ES-MSD-1207ESP003023

PATIENT
  Age: 53 Year
  Sex: Male

DRUGS (13)
  1. RIBAVIRIN [Suspect]
     Dosage: 1200 MG, QD
     Dates: start: 199403
  2. RIBAVIRIN [Suspect]
     Dosage: UNK
     Dates: start: 199602, end: 199605
  3. RIBAVIRIN [Suspect]
     Dosage: UNK
     Dates: start: 1999
  4. RIBAVIRIN [Suspect]
     Dosage: 1200 MG, QD
     Dates: start: 20120201, end: 20120313
  5. PEGINTRON [Suspect]
     Indication: HEPATITIS C
     Dosage: 120 MICROGRAM, QW
     Dates: start: 20120201, end: 20120306
  6. INTRONA [Suspect]
     Dosage: 3 MU, TIW
     Dates: start: 199209, end: 199303
  7. INTRONA [Suspect]
     Dosage: UNK
     Dates: start: 199602, end: 199605
  8. INTRONA [Suspect]
     Dosage: UNK
     Dates: start: 1999
  9. TELAPREVIR [Suspect]
     Indication: HEPATITIS C
     Dosage: 750 MG, Q8H
     Dates: start: 20120201, end: 20120310
  10. TRANDOLAPRIL [Concomitant]
     Indication: HYPERTENSION
  11. VERAPAMIL [Concomitant]
     Indication: HYPERTENSION
  12. MOXONIDINE [Concomitant]
     Indication: HYPERTENSION
  13. TELMISARTAN [Concomitant]
     Indication: HYPERTENSION

REACTIONS (3)
  - Drug reaction with eosinophilia and systemic symptoms [Recovered/Resolved]
  - Drug ineffective [Unknown]
  - Drug ineffective [Unknown]
